FAERS Safety Report 9185957 (Version 4)
Quarter: 2013Q2

REPORT INFORMATION
  Report Type: Report from Study
  Country: US (occurrence: US)
  Receive Date: 20130325
  Receipt Date: 20130627
  Transmission Date: 20140414
  Serious: Yes (Hospitalization)
  Sender: FDA-Public Use
  Company Number: US-ELI_LILLY_AND_COMPANY-US201203003178

PATIENT
  Age: 82 Year
  Sex: Female
  Weight: 40.82 kg

DRUGS (9)
  1. TERIPARATIDE [Suspect]
     Indication: OSTEOPOROSIS
     Dosage: 20 UG, QD
     Route: 065
     Dates: start: 20120216, end: 20120307
  2. TERIPARATIDE [Suspect]
     Dosage: 20 UG, QD
     Route: 065
     Dates: start: 201203
  3. TERIPARATIDE [Suspect]
     Dosage: 20 UG, QD
     Route: 065
  4. TERIPARATIDE [Suspect]
     Dosage: 20 UG, QD
     Route: 065
     Dates: start: 20121101
  5. TERIPARATIDE [Suspect]
     Dosage: 20 UG, QD
     Route: 065
  6. TERIPARATIDE [Suspect]
     Dosage: 20 UG, QD
     Route: 065
     Dates: start: 201201
  7. COUMADIN [Concomitant]
     Indication: ATRIAL FIBRILLATION
     Dosage: 5 MG, UNKNOWN
  8. DIGOXIN [Concomitant]
     Indication: ATRIAL FIBRILLATION
  9. VITAMIN D3 [Concomitant]

REACTIONS (13)
  - Peripheral artery stenosis [Unknown]
  - Blood blister [Unknown]
  - Myalgia [Not Recovered/Not Resolved]
  - Musculoskeletal pain [Unknown]
  - Pain in extremity [Unknown]
  - Prothrombin time prolonged [Not Recovered/Not Resolved]
  - Mood altered [Unknown]
  - Injection site mass [Unknown]
  - Rash [Recovered/Resolved]
  - Injection site bruising [Unknown]
  - Injection site pain [Unknown]
  - Drug dose omission [Unknown]
  - Dyspnoea [Unknown]
